FAERS Safety Report 25422294 (Version 1)
Quarter: 2025Q2

REPORT INFORMATION
  Report Type: Spontaneous
  Country: RU (occurrence: RU)
  Receive Date: 20250611
  Receipt Date: 20250611
  Transmission Date: 20250717
  Serious: Yes (Other)
  Sender: NOVARTIS
  Company Number: RU-002147023-NVSC2025RU078766

PATIENT
  Age: 63 Year

DRUGS (3)
  1. RIBOCICLIB [Suspect]
     Active Substance: RIBOCICLIB
     Indication: Breast cancer metastatic
     Dosage: 600 MG, QD (FOR 21 DAYS WITH 7-DAY PAUSES)
     Route: 048
     Dates: start: 202108
  2. RIBOCICLIB [Suspect]
     Active Substance: RIBOCICLIB
     Route: 048
     Dates: start: 202310
  3. FULVESTRANT [Concomitant]
     Active Substance: FULVESTRANT
     Indication: Product used for unknown indication
     Route: 065
     Dates: start: 202108

REACTIONS (5)
  - Neutropenia [Recovered/Resolved]
  - Breast cancer metastatic [Recovering/Resolving]
  - Metastases to bone [Recovering/Resolving]
  - Malignant neoplasm progression [Unknown]
  - Scapula fracture [Recovering/Resolving]

NARRATIVE: CASE EVENT DATE: 20221001
